FAERS Safety Report 4268125-1 (Version None)
Quarter: 2004Q1

REPORT INFORMATION
  Report Type: 
  Country: None (occurrence: None)
  Receive Date: 20040109
  Receipt Date: 20040109
  Transmission Date: 20041129
  Serious: Yes (Life-Threatening)
  Sender: FDA-Public Use
  Company Number: None

PATIENT
  Age: 36 Year
  Sex: Female
  Weight: 88.4514 kg

DRUGS (2)
  1. PAXIL [Suspect]
     Dosage: 1 TO 2   1        OTHER
     Dates: start: 20010401, end: 20030528
  2. EFFEXOR [Suspect]
     Dosage: 1           1  OTHER

REACTIONS (3)
  - MENTAL DISORDER [None]
  - PSYCHIATRIC SYMPTOM [None]
  - SUICIDAL IDEATION [None]
